FAERS Safety Report 19225631 (Version 2)
Quarter: 2021Q4

REPORT INFORMATION
  Report Type: Spontaneous
  Country: US (occurrence: US)
  Receive Date: 20210505
  Receipt Date: 20211004
  Transmission Date: 20220303
  Serious: Yes (Hospitalization, Other)
  Sender: FDA-Public Use
  Company Number: US-GILEAD-2021-0527879

PATIENT
  Sex: Female
  Weight: 54.42 kg

DRUGS (85)
  1. TRUVADA [Suspect]
     Active Substance: EMTRICITABINE\TENOFOVIR DISOPROXIL FUMARATE
     Indication: HIV infection
     Dosage: UNK
     Route: 048
     Dates: start: 2005
  2. TRUVADA [Suspect]
     Active Substance: EMTRICITABINE\TENOFOVIR DISOPROXIL FUMARATE
     Dosage: UNK
     Route: 065
     Dates: start: 200512, end: 200712
  3. TRUVADA [Suspect]
     Active Substance: EMTRICITABINE\TENOFOVIR DISOPROXIL FUMARATE
     Dosage: UNK
     Route: 065
     Dates: start: 20080115, end: 20081129
  4. STRIBILD [Suspect]
     Active Substance: COBICISTAT\ELVITEGRAVIR\EMTRICITABINE\TENOFOVIR DISOPROXIL FUMARATE
     Indication: HIV infection
     Dosage: UNK
     Route: 048
     Dates: start: 2005
  5. STRIBILD [Suspect]
     Active Substance: COBICISTAT\ELVITEGRAVIR\EMTRICITABINE\TENOFOVIR DISOPROXIL FUMARATE
     Dosage: UNK
     Route: 065
     Dates: start: 20151231, end: 201803
  6. ATRIPLA [Suspect]
     Active Substance: EFAVIRENZ\EMTRICITABINE\TENOFOVIR DISOPROXIL FUMARATE
     Indication: HIV infection
     Dosage: UNK
     Route: 048
     Dates: start: 2005
  7. ATRIPLA [Suspect]
     Active Substance: EFAVIRENZ\EMTRICITABINE\TENOFOVIR DISOPROXIL FUMARATE
     Dosage: UNK
     Route: 065
     Dates: start: 20090129, end: 201108
  8. GENVOYA [Concomitant]
     Active Substance: COBICISTAT\ELVITEGRAVIR\EMTRICITABINE\TENOFOVIR ALAFENAMIDE FUMARATE
  9. ACETAMINOPHEN [Concomitant]
     Active Substance: ACETAMINOPHEN
  10. PROVENTIL [Concomitant]
     Active Substance: ALBUTEROL
  11. AMLODIPINE [Concomitant]
     Active Substance: AMLODIPINE BESYLATE
  12. AMOXICILLIN [Concomitant]
     Active Substance: AMOXICILLIN
  13. ATOVAQUONE [Concomitant]
     Active Substance: ATOVAQUONE
  14. AZITHROMYCIN ANHYDROUS [Concomitant]
     Active Substance: AZITHROMYCIN ANHYDROUS
  15. BETHANECHOL [Concomitant]
     Active Substance: BETHANECHOL
  16. BISCOLAX [Concomitant]
     Active Substance: BISACODYL
  17. BUSPIRONE [Concomitant]
     Active Substance: BUSPIRONE HYDROCHLORIDE
  18. CALCIUM [Concomitant]
     Active Substance: CALCIUM
  19. CIPROFLOXACIN [Concomitant]
     Active Substance: CIPROFLOXACIN
  20. CITALOPRAM [Concomitant]
     Active Substance: CITALOPRAM HYDROBROMIDE
  21. CRESTOR [Concomitant]
     Active Substance: ROSUVASTATIN CALCIUM
  22. DIAZEPAM [Concomitant]
     Active Substance: DIAZEPAM
  23. DIPHENHYDRAMINE [Concomitant]
     Active Substance: DIPHENHYDRAMINE
  24. DULOXETINE [Concomitant]
     Active Substance: DULOXETINE
  25. ENOXAPARINE BECAT [Concomitant]
  26. EPIVIR [Concomitant]
     Active Substance: LAMIVUDINE
  27. EPZICOM [Concomitant]
     Active Substance: ABACAVIR SULFATE\LAMIVUDINE
  28. FERATE [Concomitant]
  29. FEXOFENADINE [Concomitant]
     Active Substance: FEXOFENADINE HYDROCHLORIDE
  30. FISH OIL [Concomitant]
     Active Substance: FISH OIL
  31. FLUCONAZOLE [Concomitant]
     Active Substance: FLUCONAZOLE
  32. FLUTICASONE [Concomitant]
     Active Substance: FLUTICASONE
  33. FOLIC ACID [Concomitant]
     Active Substance: FOLIC ACID
  34. GENERLAC [Concomitant]
     Active Substance: LACTULOSE
  35. HYDROCHLOROTHIAZIDE [Concomitant]
     Active Substance: HYDROCHLOROTHIAZIDE
  36. HYDROCODONE [Concomitant]
     Active Substance: HYDROCODONE
  37. HYDROXYZINE [Concomitant]
     Active Substance: HYDROXYZINE HYDROCHLORIDE
  38. KALETRA [Concomitant]
     Active Substance: LOPINAVIR\RITONAVIR
  39. KLONOPIN [Concomitant]
     Active Substance: CLONAZEPAM
  40. LEVOFLOXACIN [Concomitant]
     Active Substance: LEVOFLOXACIN
  41. LEXAPRO [Concomitant]
     Active Substance: ESCITALOPRAM OXALATE
  42. LEXIVA [Concomitant]
     Active Substance: FOSAMPRENAVIR CALCIUM
  43. LIPITOR [Concomitant]
     Active Substance: ATORVASTATIN CALCIUM
  44. LISINOPRIL [Concomitant]
     Active Substance: LISINOPRIL
  45. LORATADINE [Concomitant]
     Active Substance: LORATADINE
  46. LORAZEPAM [Concomitant]
     Active Substance: LORAZEPAM
  47. LYRICA [Concomitant]
     Active Substance: PREGABALIN
  48. METFORMIN [Concomitant]
     Active Substance: METFORMIN HYDROCHLORIDE
  49. METHOCARBAMOL [Concomitant]
     Active Substance: METHOCARBAMOL
  50. METOCLOPRAMIDE [Concomitant]
     Active Substance: METOCLOPRAMIDE
  51. METOPROLOL [Concomitant]
     Active Substance: METOPROLOL
  52. METRONIDAZOLE [Concomitant]
     Active Substance: METRONIDAZOLE
  53. MONTELUKAST [Concomitant]
     Active Substance: MONTELUKAST SODIUM
  54. MUCINEX [Concomitant]
     Active Substance: GUAIFENESIN
  55. NABUMETONE [Concomitant]
     Active Substance: NABUMETONE
  56. NAFTIN [Concomitant]
     Active Substance: NAFTIFINE HYDROCHLORIDE
  57. NAPROXEN [Concomitant]
     Active Substance: NAPROXEN
  58. NICORELIEF [Concomitant]
     Active Substance: NICOTINE
  59. NORVIR [Concomitant]
     Active Substance: RITONAVIR
  60. ONDANSETRON [Concomitant]
     Active Substance: ONDANSETRON
  61. PANTOPRAZOLE [Concomitant]
     Active Substance: PANTOPRAZOLE
  62. POTASSIUM [Concomitant]
     Active Substance: POTASSIUM
  63. PREDNISONE [Concomitant]
     Active Substance: PREDNISONE
  64. PROAIR HFA [Concomitant]
     Active Substance: ALBUTEROL SULFATE
  65. PROPOXYPHENE [Concomitant]
     Active Substance: PROPOXYPHENE
  66. PROPRANOLOL HYDROCHLORIDE [Concomitant]
     Active Substance: PROPRANOLOL HYDROCHLORIDE
  67. REYATAZ [Concomitant]
     Active Substance: ATAZANAVIR SULFATE
  68. RISPERIDONE [Concomitant]
     Active Substance: RISPERIDONE
  69. SERTRALINE [Concomitant]
     Active Substance: SERTRALINE HYDROCHLORIDE
  70. SULAR [Concomitant]
     Active Substance: NISOLDIPINE
  71. SULFAMETHOXAZOLE [Concomitant]
     Active Substance: SULFAMETHOXAZOLE
  72. SYMBICORT [Concomitant]
     Active Substance: BUDESONIDE\FORMOTEROL FUMARATE DIHYDRATE
  73. TEMAZEPAM [Concomitant]
     Active Substance: TEMAZEPAM
  74. THIAMINE [Concomitant]
     Active Substance: THIAMINE
  75. TIZANIDINE [Concomitant]
     Active Substance: TIZANIDINE
  76. TRAMADOL [Concomitant]
     Active Substance: TRAMADOL
  77. TRIAMCINOLONE [Concomitant]
     Active Substance: TRIAMCINOLONE
  78. VALACYCLOVIR HYDROCHLORIDE [Concomitant]
     Active Substance: VALACYCLOVIR HYDROCHLORIDE
  79. VALTREX [Concomitant]
     Active Substance: VALACYCLOVIR HYDROCHLORIDE
  80. VENTOLIN [Concomitant]
     Active Substance: ALBUTEROL SULFATE
  81. VITAMIN B12 [Concomitant]
     Active Substance: CYANOCOBALAMIN
  82. XOPENEX [Concomitant]
     Active Substance: LEVALBUTEROL HYDROCHLORIDE
  83. ZETIA [Concomitant]
     Active Substance: EZETIMIBE
  84. ZIAGEN [Concomitant]
     Active Substance: ABACAVIR SULFATE
  85. ZOLPIDEM [Concomitant]
     Active Substance: ZOLPIDEM TARTRATE

REACTIONS (16)
  - Osteoporosis [Not Recovered/Not Resolved]
  - Wrist fracture [Recovered/Resolved]
  - Nephrolithiasis [Unknown]
  - Renal failure [Not Recovered/Not Resolved]
  - Acute kidney injury [Recovered/Resolved]
  - Bone density decreased [Not Recovered/Not Resolved]
  - Emotional distress [Not Recovered/Not Resolved]
  - Anhedonia [Not Recovered/Not Resolved]
  - Hypertension [Unknown]
  - Vision blurred [Unknown]
  - Urinary retention [Unknown]
  - Gait disturbance [Unknown]
  - Depression [Not Recovered/Not Resolved]
  - Anxiety [Not Recovered/Not Resolved]
  - Pain [Not Recovered/Not Resolved]
  - Diarrhoea [Unknown]

NARRATIVE: CASE EVENT DATE: 20080101
